FAERS Safety Report 16755706 (Version 4)
Quarter: 2019Q3

REPORT INFORMATION
  Report Type: Report from Study
  Country: JP (occurrence: JP)
  Receive Date: 20190829
  Receipt Date: 20190919
  Transmission Date: 20191005
  Serious: Yes (Other)
  Sender: FDA-Public Use
  Company Number: JP-JNJFOC-20190712767

PATIENT
  Age: 64 Year
  Sex: Female
  Weight: 55.5 kg

DRUGS (6)
  1. LOXONIN [Concomitant]
     Active Substance: LOXOPROFEN SODIUM
     Route: 048
     Dates: end: 20180918
  2. RHEUMATREX [Suspect]
     Active Substance: METHOTREXATE SODIUM
     Route: 048
     Dates: start: 20180823, end: 20180919
  3. GUSELKUMAB [Suspect]
     Active Substance: GUSELKUMAB
     Indication: PSORIASIS
     Route: 058
     Dates: start: 20180823, end: 20181109
  4. FOLIAMIN [Concomitant]
     Active Substance: FOLIC ACID
     Dosage: UNKNOWN
     Route: 065
     Dates: end: 20180918
  5. TAKECAB [Concomitant]
     Active Substance: VONOPRAZAN FUMURATE
     Dosage: UNKNOWN
     Route: 048
     Dates: end: 20180918
  6. ISONARIF [Concomitant]
     Active Substance: ISONIAZID\RIFAMPIN
     Route: 048
     Dates: start: 20180823, end: 20180918

REACTIONS (2)
  - Hepatic function abnormal [Recovering/Resolving]
  - Therapeutic response decreased [Unknown]

NARRATIVE: CASE EVENT DATE: 20180919
